FAERS Safety Report 15192412 (Version 5)
Quarter: 2019Q1

REPORT INFORMATION
  Report Type: Report from Study
  Country: US (occurrence: US)
  Receive Date: 20180724
  Receipt Date: 20190218
  Transmission Date: 20190417
  Serious: No
  Sender: FDA-Public Use
  Company Number: PHEH2018US029866

PATIENT
  Age: 38 Year
  Sex: Male

DRUGS (3)
  1. ETHYL ALCOHOL [Suspect]
     Active Substance: ALCOHOL
     Indication: PRODUCT USED FOR UNKNOWN INDICATION
     Dosage: UNK
     Route: 065
  2. GILENYA [Suspect]
     Active Substance: FINGOLIMOD HYDROCHLORIDE
     Dosage: 2 DF, UNK
     Route: 048
  3. GILENYA [Suspect]
     Active Substance: FINGOLIMOD HYDROCHLORIDE
     Indication: MULTIPLE SCLEROSIS
     Dosage: 0.5 MG, QD
     Route: 048
     Dates: start: 20180407

REACTIONS (9)
  - Hepatic enzyme increased [Unknown]
  - Fatigue [Not Recovered/Not Resolved]
  - Insomnia [Unknown]
  - Memory impairment [Unknown]
  - Musculoskeletal pain [Unknown]
  - Accidental overdose [Unknown]
  - Neck pain [Unknown]
  - Self-induced vomiting [Unknown]
  - Depression [Unknown]

NARRATIVE: CASE EVENT DATE: 20180407
